FAERS Safety Report 5255968-0 (Version None)
Quarter: 2007Q1

REPORT INFORMATION
  Report Type: 
  Country: None (occurrence: None)
  Receive Date: 20070306
  Receipt Date: 20070221
  Transmission Date: 20070707
  Serious: Yes (Other)
  Sender: FDA-Public Use
  Company Number: FR-ELI_LILLY_AND_COMPANY-FR200702004877

PATIENT
  Age: 71 Year
  Sex: Female

DRUGS (3)
  1. FORTEO [Suspect]
     Indication: OSTEOPOROSIS
     Dosage: 20 UG, DAILY (1/D)
     Route: 058
     Dates: start: 20060526
  2. OXYGEN [Concomitant]
     Indication: RESPIRATORY FAILURE
     Dosage: 2 LITER, UNK
     Route: 055
  3. SKENAN [Concomitant]
     Indication: PAIN
     Dosage: 30 MG, 2/D
     Route: 048

REACTIONS (2)
  - MALIGNANT PLEURAL EFFUSION [None]
  - RESPIRATORY DISORDER [None]
